FAERS Safety Report 9154499 (Version 1)
Quarter: 2013Q1

REPORT INFORMATION
  Report Type: Spontaneous
  Country: US (occurrence: US)
  Receive Date: 20130311
  Receipt Date: 20130311
  Transmission Date: 20140127
  Serious: No
  Sender: FDA-Public Use
  Company Number: US-ABBOTT-12P-163-1019061-00

PATIENT
  Age: 28 Year
  Sex: Female
  Weight: 143.01 kg

DRUGS (3)
  1. LUPRON DEPOT [Suspect]
     Indication: ENDOMETRIOSIS
     Route: 030
     Dates: start: 201211
  2. LUPRON DEPOT [Suspect]
     Indication: PELVIC PAIN
  3. NORETHINDRONE [Suspect]
     Indication: HORMONE THERAPY
     Route: 048
     Dates: start: 20121109, end: 20121206

REACTIONS (1)
  - Swollen tongue [Not Recovered/Not Resolved]
